FAERS Safety Report 6087907-7 (Version None)
Quarter: 2009Q1

REPORT INFORMATION
  Report Type: 
  Country: None (occurrence: None)
  Receive Date: 20090219
  Receipt Date: 20090219
  Transmission Date: 20090719
  Serious: No
  Sender: FDA-Public Use
  Company Number: None

PATIENT
  Age: 26 Year
  Sex: Male
  Weight: 86.1834 kg

DRUGS (7)
  1. ZIPRASIDONE HCL [Suspect]
     Dosage: 160MG DAYPO
     Route: 048
  2. ABILIFY [Concomitant]
  3. GEODON [Concomitant]
  4. WELLBUTRIN [Concomitant]
  5. LORAZEPAM [Concomitant]
  6. LITHIUM [Concomitant]
  7. QUETIAPINE [Concomitant]

REACTIONS (1)
  - NO ADVERSE EVENT [None]
